FAERS Safety Report 7922755-1 (Version None)
Quarter: 2011Q4

REPORT INFORMATION
  Report Type: 
  Country: None (occurrence: None)
  Receive Date: 20111117
  Receipt Date: 20110124
  Transmission Date: 20120403
  Serious: No
  Sender: FDA-Public Use
  Company Number: US-AMGEN-USASP2011004225

PATIENT
  Age: 13 Year
  Sex: Female

DRUGS (2)
  1. METHOTREXATE [Concomitant]
     Dates: start: 20060101
  2. ENBREL [Suspect]
     Indication: JUVENILE ARTHRITIS
     Dosage: 40 MG, QWK
     Dates: start: 20091009

REACTIONS (2)
  - JOINT STIFFNESS [None]
  - ARTHRITIS [None]
